FAERS Safety Report 4559173-2 (Version None)
Quarter: 2005Q1

REPORT INFORMATION
  Report Type: 
  Country: None (occurrence: None)
  Receive Date: 20050119
  Receipt Date: 20050111
  Transmission Date: 20050727
  Serious: Yes (Hospitalization)
  Sender: FDA-Public Use
  Company Number: 2005009714

PATIENT
  Age: 76 Year
  Sex: Female

DRUGS (9)
  1. CEFEPODOXIME PROXETIL TABLET (CEFOPODOXIME PROXETIL) [Suspect]
     Indication: CHRONIC OBSTRUCTIVE PULMONARY DISEASE
     Dosage: ORAL
     Route: 048
  2. METRONIDAZOLE [Suspect]
     Indication: TOOTH EXTRACTION
     Dosage: 3 U, ORAL
     Route: 048
     Dates: start: 20040806, end: 20040812
  3. CLAVUMOX (CLAVULANATE POTASSIUM, AMOXICILLIN TRIHYDRATE) [Suspect]
     Indication: CHRONIC OBSTRUCTIVE PULMONARY DISEASE
     Dosage: ORAL
     Route: 048
     Dates: start: 20040802, end: 20040812
  4. CIPROFLOXACIN [Suspect]
     Indication: CHRONIC OBSTRUCTIVE PULMONARY DISEASE
     Dosage: ORAL
     Route: 048
     Dates: start: 20040802, end: 20040812
  5. PRISTINAMYCIN (PRISTINAMYCIN) [Suspect]
     Indication: ILL-DEFINED DISORDER
     Dosage: ORAL
     Route: 048
  6. SPIRAMYCIN (SPIRAMYCIN) [Suspect]
     Indication: TOOTH EXTRACTION
     Dosage: 3 U, ORAL
     Route: 048
     Dates: start: 20040806, end: 20040812
  7. TIAPROFENIC ACID (TIAPROFENIC ACID) [Concomitant]
  8. LEVOCETIRIZINE DIHYDROCHLORIDE (LEVOCETIRIZINE DIHYDROCHLORIDE) [Concomitant]
  9. HYDROXYZINE HCL [Concomitant]

REACTIONS (2)
  - MYCOSIS FUNGOIDES [None]
  - TOOTH EXTRACTION [None]
